FAERS Safety Report 9392395 (Version 1)
Quarter: 2013Q3

REPORT INFORMATION
  Report Type: Spontaneous
  Country: US (occurrence: US)
  Receive Date: 20130710
  Receipt Date: 20130710
  Transmission Date: 20140515
  Serious: Yes (Hospitalization, Other)
  Sender: FDA-Public Use
  Company Number: US-ASTRAZENECA-2013SE50281

PATIENT
  Age: 21 Year
  Sex: Female

DRUGS (6)
  1. SEROQUEL [Suspect]
     Route: 048
     Dates: end: 201302
  2. KLONOPIN [Suspect]
     Route: 065
  3. DEPAKOTE [Suspect]
     Route: 065
     Dates: end: 2010
  4. ELAVIL [Suspect]
     Route: 065
     Dates: end: 2012
  5. LASIX [Suspect]
     Route: 065
  6. TOPAMAX [Suspect]
     Route: 065
     Dates: end: 201302

REACTIONS (14)
  - Premature delivery [Unknown]
  - Exposure during pregnancy [Unknown]
  - Head injury [Unknown]
  - Labour pain [Unknown]
  - Status epilepticus [Unknown]
  - Premature separation of placenta [Unknown]
  - Grand mal convulsion [Unknown]
  - Convulsion [Unknown]
  - Anxiety [Unknown]
  - Insomnia [Recovered/Resolved]
  - Gestational diabetes [Unknown]
  - Migraine [Unknown]
  - Somnolence [Recovered/Resolved]
  - Intentional drug misuse [Unknown]
